FAERS Safety Report 25391387 (Version 1)
Quarter: 2025Q2

REPORT INFORMATION
  Report Type: Spontaneous
  Country: FR (occurrence: FR)
  Receive Date: 20250603
  Receipt Date: 20250603
  Transmission Date: 20250717
  Serious: Yes (Other)
  Sender: PFIZER
  Company Number: FR-ELI_LILLY_AND_COMPANY-FR202505011487

PATIENT
  Sex: Male

DRUGS (2)
  1. RITUXIMAB-PVVR [Suspect]
     Active Substance: RITUXIMAB-PVVR
     Indication: Multiple sclerosis
     Route: 065
  2. TALTZ [Suspect]
     Active Substance: IXEKIZUMAB
     Route: 065

REACTIONS (3)
  - Herpes ophthalmic [Unknown]
  - Cataract [Unknown]
  - Off label use [Unknown]
